FAERS Safety Report 7067755-1 (Version None)
Quarter: 2010Q4

REPORT INFORMATION
  Report Type: 
  Country: None (occurrence: None)
  Receive Date: 20101028
  Receipt Date: 20091016
  Transmission Date: 20110411
  Serious: No
  Sender: FDA-Public Use
  Company Number: A0807417A

PATIENT
  Age: 54 Year
  Sex: Female

DRUGS (9)
  1. SEREVENT [Suspect]
     Indication: ASTHMA
     Dosage: 1PUFF TWICE PER DAY
     Route: 055
  2. FLOVENT [Concomitant]
  3. PROVENTIL-HFA [Concomitant]
  4. ESGIC [Concomitant]
  5. NASONEX [Concomitant]
  6. KLONOPIN [Concomitant]
  7. SIMVASTATIN [Concomitant]
  8. MUCINEX [Concomitant]
  9. ACETAMINOPHEN [Concomitant]

REACTIONS (3)
  - DYSPHONIA [None]
  - ILL-DEFINED DISORDER [None]
  - PRODUCT QUALITY ISSUE [None]
